FAERS Safety Report 26180835 (Version 1)
Quarter: 2025Q4

REPORT INFORMATION
  Report Type: Report from Study
  Country: AR (occurrence: AR)
  Receive Date: 20251221
  Receipt Date: 20251221
  Transmission Date: 20260117
  Serious: Yes (Hospitalization, Other)
  Sender: BIOGEN
  Company Number: AR-BIOGEN-2095462

PATIENT
  Age: 4 Year
  Sex: Female

DRUGS (4)
  1. SPINRAZA [Suspect]
     Active Substance: NUSINERSEN
     Indication: Spinal muscular atrophy
     Dosage: PATIENT UNDERGOING SUSPENDED TREATMENT. FINANCIER DELIVERS LIGONUX.
     Dates: start: 20210907, end: 20240508
  2. NUSINERSEN [Concomitant]
     Active Substance: NUSINERSEN
     Indication: Product used for unknown indication
  3. NUSINERSEN [Concomitant]
     Active Substance: NUSINERSEN
  4. NUSINERSEN [Concomitant]
     Active Substance: NUSINERSEN

REACTIONS (9)
  - Femur fracture [Recovered/Resolved]
  - Musculoskeletal discomfort [Unknown]
  - Scoliosis [Unknown]
  - Pain in extremity [Unknown]
  - Asthenia [Not Recovered/Not Resolved]
  - Post procedural complication [Recovered/Resolved]
  - Post procedural infection [Not Recovered/Not Resolved]
  - Gastroenteritis viral [Recovered/Resolved]
  - Device physical property issue [Recovered/Resolved]

NARRATIVE: CASE EVENT DATE: 20241001
